FAERS Safety Report 24055194 (Version 1)
Quarter: 2024Q3

REPORT INFORMATION
  Report Type: Report from Study
  Country: US (occurrence: US)
  Receive Date: 20240705
  Receipt Date: 20240705
  Transmission Date: 20241016
  Serious: Yes (Death)
  Sender: OTSUKA
  Company Number: US-OTSUKA-2024_018816

PATIENT
  Sex: Female

DRUGS (1)
  1. BREXPIPRAZOLE [Suspect]
     Active Substance: BREXPIPRAZOLE
     Indication: Product used for unknown indication
     Dosage: 0.5 MG, QD (30 TABLETS FOR 30 DAYS SUPPLY)
     Route: 065

REACTIONS (1)
  - Death [Fatal]
